FAERS Safety Report 21555435 (Version 2)
Quarter: 2022Q4

REPORT INFORMATION
  Report Type: Spontaneous
  Country: JP (occurrence: JP)
  Receive Date: 20221104
  Receipt Date: 20221118
  Transmission Date: 20230113
  Serious: Yes (Hospitalization)
  Sender: FDA-Public Use
  Company Number: JP-ELI_LILLY_AND_COMPANY-JP202211001448

PATIENT
  Age: 25 Year
  Sex: Male

DRUGS (12)
  1. TADALAFIL [Suspect]
     Active Substance: TADALAFIL
     Indication: Pulmonary arterial hypertension
     Dosage: 40 MG, DAILY
     Route: 048
  2. BOSENTAN [Concomitant]
     Active Substance: BOSENTAN
     Indication: Pulmonary arterial hypertension
     Dosage: 125 MG, UNKNOWN
  3. REVATIO [Concomitant]
     Active Substance: SILDENAFIL CITRATE
     Indication: Pulmonary arterial hypertension
     Dosage: 60 MG, UNKNOWN
  4. BERAPROST SODIUM [Concomitant]
     Active Substance: BERAPROST SODIUM
     Indication: Pulmonary arterial hypertension
     Dosage: 120 UG, UNKNOWN
  5. DOBUTAMINE [Concomitant]
     Active Substance: DOBUTAMINE HYDROCHLORIDE
     Indication: Product used for unknown indication
     Dosage: UNK UNK, UNKNOWN
     Route: 065
  6. DOBUTAMINE [Concomitant]
     Active Substance: DOBUTAMINE HYDROCHLORIDE
     Dosage: UNK UNK, UNKNOWN
     Route: 065
  7. OPSUMIT [Concomitant]
     Active Substance: MACITENTAN
     Indication: Pulmonary arterial hypertension
     Dosage: 10 MG, DAILY
  8. EPOPROSTENOL [Concomitant]
     Active Substance: EPOPROSTENOL
     Indication: Pulmonary arterial hypertension
     Dosage: 49 NG, UNKNOWN
  9. EPOPROSTENOL [Concomitant]
     Active Substance: EPOPROSTENOL
     Dosage: 382500 NG, UNKNOWN
  10. EPOPROSTENOL [Concomitant]
     Active Substance: EPOPROSTENOL
     Dosage: 49 NG, UNKNOWN
  11. EPOPROSTENOL [Concomitant]
     Active Substance: EPOPROSTENOL
     Dosage: 55 NG, UNKNOWN
  12. EPOPROSTENOL [Concomitant]
     Active Substance: EPOPROSTENOL
     Dosage: 83 NG, UNKNOWN

REACTIONS (9)
  - Device related infection [Unknown]
  - Device related infection [Unknown]
  - Device related infection [Unknown]
  - Right ventricular failure [Recovered/Resolved]
  - Right ventricular failure [Recovered/Resolved]
  - Basedow^s disease [Unknown]
  - Hyperthyroidism [Unknown]
  - Syncope [Recovered/Resolved]
  - COVID-19 [Unknown]

NARRATIVE: CASE EVENT DATE: 20190101
